FAERS Safety Report 15235011 (Version 1)
Quarter: 2018Q3

REPORT INFORMATION
  Report Type: Spontaneous
  Country: LB (occurrence: LB)
  Receive Date: 20180803
  Receipt Date: 20180803
  Transmission Date: 20181010
  Serious: Yes (Hospitalization, Other)
  Sender: FDA-Public Use
  Company Number: LB-IPCA LABORATORIES LIMITED-IPC-2018-LB-001271

PATIENT

DRUGS (2)
  1. PROPRANOLOL [Suspect]
     Active Substance: PROPRANOLOL HYDROCHLORIDE
     Indication: HYPERTHYROIDISM
     Dosage: 40 MG, BID
     Route: 065
  2. METHIMAZOLE. [Suspect]
     Active Substance: METHIMAZOLE
     Indication: HYPERTHYROIDISM
     Dosage: 10 MG, BID
     Route: 065

REACTIONS (4)
  - Exposure during pregnancy [Unknown]
  - Abortion induced [Unknown]
  - Pre-eclampsia [Unknown]
  - Benign hydatidiform mole [Unknown]
